FAERS Safety Report 21984319 (Version 1)
Quarter: 2023Q1

REPORT INFORMATION
  Report Type: Report from Study
  Country: IT (occurrence: IT)
  Receive Date: 20230213
  Receipt Date: 20230213
  Transmission Date: 20230417
  Serious: Yes (Other)
  Sender: FDA-Public Use
  Company Number: None

PATIENT
  Age: 27 Year
  Sex: Female

DRUGS (1)
  1. TECFIDERA [Suspect]
     Active Substance: DIMETHYL FUMARATE
     Indication: Relapsing multiple sclerosis
     Dosage: 240 MG TWICE DAILY
     Route: 050
     Dates: start: 20210903

REACTIONS (2)
  - Insulin resistance [Not Recovered/Not Resolved]
  - Ovarian dysfunction [Not Recovered/Not Resolved]

NARRATIVE: CASE EVENT DATE: 20230109
